FAERS Safety Report 8876729 (Version 4)
Quarter: 2012Q4

REPORT INFORMATION
  Report Type: 
  Country: SE (occurrence: SE)
  Receive Date: 20121029
  Receipt Date: 20121231
  Transmission Date: 20130627
  Serious: Yes (Hospitalization)
  Sender: FDA-Public Use
  Company Number: SE-ROCHE-1149675

PATIENT
  Age: 60 Year
  Sex: Male

DRUGS (7)
  1. PEGASYS [Suspect]
     Indication: HEPATITIS
     Route: 065
     Dates: start: 20120320, end: 20120904
  2. COPEGUS [Suspect]
     Indication: HEPATITIS
     Route: 065
     Dates: start: 20120320, end: 20120907
  3. INCIVO [Suspect]
     Indication: HEPATITIS
     Route: 048
     Dates: start: 20120320, end: 20120612
  4. CETRIZINE (UNK INGREDIENTS) [Concomitant]
     Route: 065
  5. ATARAX [Concomitant]
     Route: 065
  6. PROPAVAN [Concomitant]
     Route: 065
  7. FLUDENT [Concomitant]
     Route: 065

REACTIONS (3)
  - Myocardial infarction [Not Recovered/Not Resolved]
  - Cardiac failure [Not Recovered/Not Resolved]
  - Anaemia [Not Recovered/Not Resolved]
